FAERS Safety Report 23658248 (Version 1)
Quarter: 2024Q1

REPORT INFORMATION
  Report Type: Spontaneous
  Country: US (occurrence: None)
  Receive Date: 20240320
  Receipt Date: 20240320
  Transmission Date: 20240410
  Serious: Yes (Hospitalization)
  Sender: FDA-Public Use
  Company Number: None

PATIENT
  Sex: Female

DRUGS (1)
  1. XOLAIR [Suspect]
     Active Substance: OMALIZUMAB
     Indication: Asthma
     Dosage: OTHER QUANTITY : 2 SYRINGES;?FREQUENCY : EVERY OTHER WEEK;?
     Route: 058
     Dates: start: 20230204

REACTIONS (2)
  - Chest pain [None]
  - Hip arthroplasty [None]
